FAERS Safety Report 10967939 (Version 1)
Quarter: 2015Q1

REPORT INFORMATION
  Report Type: Spontaneous
  Country: BR (occurrence: BR)
  Receive Date: 20150330
  Receipt Date: 20150330
  Transmission Date: 20150721
  Serious: Yes (Other)
  Sender: FDA-Public Use
  Company Number: BR-PFIZER INC-2015103815

PATIENT
  Age: 84 Year
  Sex: Female
  Weight: 75 kg

DRUGS (1)
  1. LIPITOR [Suspect]
     Active Substance: ATORVASTATIN CALCIUM
     Indication: BLOOD CHOLESTEROL ABNORMAL
     Dosage: UNK
     Route: 048

REACTIONS (1)
  - Dementia Alzheimer^s type [Not Recovered/Not Resolved]

NARRATIVE: CASE EVENT DATE: 2012
